FAERS Safety Report 8648946 (Version 3)
Quarter: 2012Q4

REPORT INFORMATION
  Report Type: 
  Country: DE (occurrence: IT)
  Receive Date: 20120704
  Receipt Date: 20120925
  Transmission Date: 20130627
  Serious: Yes (Hospitalization)
  Sender: FDA-Public Use
  Company Number: IT-BRISTOL-MYERS SQUIBB COMPANY-16730541

PATIENT
  Age: 73 Year
  Sex: Female

DRUGS (8)
  1. GLUCOPHAGE [Suspect]
     Indication: DIABETES MELLITUS
     Dosage: Glucophage 1000mg
     Route: 048
     Dates: start: 20090101, end: 20120406
  2. ACTOS [Concomitant]
     Route: 048
  3. CARDIOASPIRIN [Concomitant]
     Route: 048
  4. FORZAAR [Concomitant]
     Dosage: 1df= 100mg+25mg
     Route: 048
  5. LESCOL [Concomitant]
     Route: 048
  6. ENTACT [Concomitant]
     Route: 048
  7. ALENDROS [Concomitant]
     Route: 048
  8. TRAVATAN [Concomitant]
     Route: 047

REACTIONS (4)
  - Weight decreased [Recovered/Resolved]
  - Nausea [Recovered/Resolved]
  - Vomiting [Recovered/Resolved]
  - Incisional hernia [Unknown]
